FAERS Safety Report 7932653-5 (Version None)
Quarter: 2011Q4

REPORT INFORMATION
  Report Type: 
  Country: None (occurrence: None)
  Receive Date: 20111118
  Receipt Date: 20111118
  Transmission Date: 20120403
  Serious: No
  Sender: FDA-Public Use
  Company Number: None

PATIENT
  Sex: Female

DRUGS (1)
  1. CIMZIA [Suspect]
     Dosage: 200MG/ML SC
     Route: 058

REACTIONS (4)
  - TONGUE ULCERATION [None]
  - URTICARIA [None]
  - GENERAL PHYSICAL CONDITION ABNORMAL [None]
  - RASH [None]
